FAERS Safety Report 7959916-1 (Version None)
Quarter: 2011Q4

REPORT INFORMATION
  Report Type: 
  Country: None (occurrence: None)
  Receive Date: 20111206
  Receipt Date: 20111201
  Transmission Date: 20120403
  Serious: Yes (Hospitalization, Other)
  Sender: FDA-Public Use
  Company Number: US-MERCK-1102USA02272

PATIENT
  Age: 52 Year
  Sex: Female
  Weight: 52 kg

DRUGS (43)
  1. EVISTA [Concomitant]
     Indication: OSTEOPOROSIS
     Route: 065
     Dates: start: 20070101, end: 20070101
  2. ALLEGRA [Concomitant]
     Indication: HYPERSENSITIVITY
     Route: 065
  3. ASCORBIC ACID [Concomitant]
     Route: 065
  4. CALCIUM (UNSPECIFIED) AND VITAMIN D (UNSPECIFIED) [Concomitant]
     Route: 048
  5. EFFEXOR [Concomitant]
     Route: 048
  6. BONIVA [Concomitant]
     Indication: OSTEOPOROSIS
     Route: 065
     Dates: start: 20100319
  7. FOSAMAX [Suspect]
     Indication: OSTEOPENIA
     Route: 048
     Dates: start: 20000101, end: 20070701
  8. FOSAMAX [Suspect]
     Route: 048
  9. FOSAMAX [Suspect]
     Route: 048
     Dates: start: 20000113
  10. METHYLPRED ORAL [Concomitant]
     Indication: HYPERSENSITIVITY
     Route: 065
  11. IRON (UNSPECIFIED) [Concomitant]
     Route: 048
  12. CYANOCOBALAMIN [Concomitant]
     Route: 065
  13. CITRUCEL (METHYLCELLULOSE) [Concomitant]
     Route: 065
  14. CALCIUM CITRATE [Concomitant]
     Route: 065
  15. FOSAMAX [Suspect]
     Route: 048
     Dates: start: 20081001, end: 20100401
  16. VITAMIN E [Concomitant]
     Route: 065
  17. INFLUENZA VIRUS VACCINE (UNSPECIFIED) [Concomitant]
     Route: 065
     Dates: start: 20080101
  18. ANALGESIC (UNSPECIFIED) [Concomitant]
     Route: 065
  19. FOSAMAX [Suspect]
     Indication: OSTEOPOROSIS
     Route: 048
     Dates: start: 20000101, end: 20070701
  20. CLARINEX [Concomitant]
     Indication: HYPERSENSITIVITY
     Route: 048
  21. CHOLECALCIFEROL [Concomitant]
     Route: 065
  22. ONE-A-DAY ESSENTIAL VITAMINS [Concomitant]
     Route: 065
  23. VITAMINS (UNSPECIFIED) [Concomitant]
     Route: 065
  24. [THERAPY UNSPECIFIED] [Concomitant]
     Route: 065
  25. FOSAMAX [Suspect]
     Route: 048
  26. PREMARIN [Concomitant]
     Indication: HORMONE THERAPY
     Route: 065
     Dates: start: 20040101, end: 20060101
  27. EVISTA [Concomitant]
     Route: 048
     Dates: start: 20070101, end: 20070101
  28. CALCIUM (UNSPECIFIED) [Concomitant]
     Route: 065
  29. CITRICAL [Concomitant]
     Route: 065
  30. FOSAMAX [Suspect]
     Route: 048
     Dates: start: 20000113
  31. FOSAMAX PLUS D [Suspect]
     Indication: OSTEOPOROSIS
     Route: 048
     Dates: start: 20070801, end: 20081001
  32. CORTICOSTEROIDS (UNSPECIFIED) [Concomitant]
     Route: 065
     Dates: start: 20050101, end: 20110101
  33. OMEGA-3 MARINE TRIGLYCERIDES [Concomitant]
     Route: 065
  34. FOLIC ACID [Concomitant]
     Route: 065
  35. LOVAZA [Concomitant]
     Route: 065
  36. FOSAMAX PLUS D [Suspect]
     Route: 065
  37. FOSAMAX PLUS D [Suspect]
     Indication: OSTEOPENIA
     Route: 048
     Dates: start: 20070801, end: 20081001
  38. FOSAMAX PLUS D [Suspect]
     Route: 065
  39. ANTIMICROBIAL (UNSPECIFIED) [Concomitant]
     Route: 065
  40. VITAMIN D (UNSPECIFIED) [Concomitant]
     Route: 065
  41. IRON (UNSPECIFIED) [Concomitant]
     Route: 065
     Dates: start: 20050401, end: 20050501
  42. FOSAMAX [Suspect]
     Route: 048
     Dates: start: 20081001, end: 20100401
  43. PNEUMOCOCCAL VACCINE (UNSPECIFIED) [Concomitant]
     Route: 065
     Dates: start: 20070101

REACTIONS (36)
  - OCCULT BLOOD POSITIVE [None]
  - DRUG INEFFECTIVE [None]
  - HAEMORRHAGIC DISORDER [None]
  - ABDOMINAL PAIN UPPER [None]
  - ANASTOMOTIC ULCER [None]
  - GASTROENTERITIS [None]
  - ACUTE SINUSITIS [None]
  - FIBROCYSTIC BREAST DISEASE [None]
  - FIBROADENOMA OF BREAST [None]
  - BLOOD TRIGLYCERIDES INCREASED [None]
  - SHIGELLA INFECTION [None]
  - NIGHT SWEATS [None]
  - MORTON'S NEUROMA [None]
  - DRUG HYPERSENSITIVITY [None]
  - FACET JOINT SYNDROME [None]
  - GASTROINTESTINAL DISORDER [None]
  - VITAMIN D DEFICIENCY [None]
  - MIGRAINE [None]
  - NASOPHARYNGITIS [None]
  - SPINAL OSTEOARTHRITIS [None]
  - BREAST PAIN [None]
  - ARTHRITIS [None]
  - CHANGE OF BOWEL HABIT [None]
  - HOT FLUSH [None]
  - BURSITIS [None]
  - PAIN IN EXTREMITY [None]
  - MUCOSAL ULCERATION [None]
  - IRON DEFICIENCY ANAEMIA [None]
  - ARTHRALGIA [None]
  - FALL [None]
  - DIVERTICULUM [None]
  - FEMUR FRACTURE [None]
  - CARDIAC FAILURE CONGESTIVE [None]
  - GINGIVAL PAIN [None]
  - OSTEOARTHRITIS [None]
  - LICHEN SCLEROSUS [None]
